FAERS Safety Report 6431370-0 (Version None)
Quarter: 2009Q4

REPORT INFORMATION
  Report Type: 
  Country: None (occurrence: None)
  Receive Date: 20091106
  Receipt Date: 20091026
  Transmission Date: 20100525
  Serious: Yes (Hospitalization, Other)
  Sender: FDA-Public Use
  Company Number: PHHY2009DE46904

PATIENT
  Age: 73 Year
  Sex: Male

DRUGS (3)
  1. RASILEZ [Suspect]
     Indication: HYPERTENSION
     Dosage: 300 MG/DAY
     Dates: start: 20081001
  2. AMLOBETA [Concomitant]
     Dosage: 1 DF, QD
     Dates: start: 20050101
  3. BISOHEXAL [Concomitant]
     Dosage: 0.5 DF, QD
     Dates: start: 20050101

REACTIONS (5)
  - ALANINE AMINOTRANSFERASE INCREASED [None]
  - ASPARTATE AMINOTRANSFERASE INCREASED [None]
  - GAMMA-GLUTAMYLTRANSFERASE INCREASED [None]
  - HYPERTHYROIDISM [None]
  - THYROID OPERATION [None]
